FAERS Safety Report 8256866-0 (Version None)
Quarter: 2012Q2

REPORT INFORMATION
  Report Type: 
  Country: None (occurrence: None)
  Receive Date: 20120403
  Receipt Date: 20120328
  Transmission Date: 20120825
  Serious: Yes (Other)
  Sender: FDA-Public Use
  Company Number: US-PFIZER INC-2012049586

PATIENT
  Sex: Male

DRUGS (5)
  1. ULTRAM [Concomitant]
  2. LISINOPRIL [Concomitant]
  3. PROZAC [Concomitant]
  4. LYRICA [Suspect]
     Dosage: 75 MG, 4 TABS 2X/DAY
  5. CLONIDINE [Concomitant]

REACTIONS (1)
  - ANTIPHOSPHOLIPID SYNDROME [None]
